FAERS Safety Report 7266092-X (Version None)
Quarter: 2011Q1

REPORT INFORMATION
  Report Type: 
  Country: None (occurrence: None)
  Receive Date: 20110131
  Receipt Date: 20100203
  Transmission Date: 20110831
  Serious: No
  Sender: FDA-Public Use
  Company Number: US-ABBOTT-10P-163-0624704-00

PATIENT
  Weight: 117.13 kg

DRUGS (2)
  1. PREDNISONE [Concomitant]
     Indication: OEDEMA PERIPHERAL
  2. LUPRON DEPOT [Suspect]
     Indication: ARTHRALGIA
     Dates: start: 20090101, end: 20090101

REACTIONS (5)
  - ANXIETY [None]
  - ERECTILE DYSFUNCTION [None]
  - TESTICULAR ATROPHY [None]
  - WRONG DRUG ADMINISTERED [None]
  - LIBIDO DECREASED [None]
